FAERS Safety Report 22625016 (Version 1)
Quarter: 2023Q2

REPORT INFORMATION
  Report Type: Spontaneous
  Country: US (occurrence: None)
  Receive Date: 20230620
  Receipt Date: 20230620
  Transmission Date: 20230721
  Serious: Yes (Disabling, Other)
  Sender: FDA-Public Use
  Company Number: None

PATIENT
  Sex: 0

DRUGS (2)
  1. DOXYCYCLINE HYCLATE [Suspect]
     Active Substance: DOXYCYCLINE HYCLATE
     Indication: Prostate infection
     Dosage: OTHER QUANTITY : 1 TABLET(S);?FREQUENCY : TWICE A DAY;?
     Route: 048
     Dates: start: 20230606
  2. Hydrocodone Acetaminophen [Concomitant]

REACTIONS (11)
  - Joint swelling [None]
  - Peripheral swelling [None]
  - Swelling face [None]
  - Swelling [None]
  - Peripheral swelling [None]
  - Constipation [None]
  - Ocular hyperaemia [None]
  - Eye swelling [None]
  - Visual impairment [None]
  - Lymphadenopathy [None]
  - General physical health deterioration [None]

NARRATIVE: CASE EVENT DATE: 20230613
